FAERS Safety Report 11155295 (Version 1)
Quarter: 2015Q2

REPORT INFORMATION
  Report Type: Spontaneous
  Country: US (occurrence: US)
  Receive Date: 20150602
  Receipt Date: 20150602
  Transmission Date: 20150821
  Serious: No
  Sender: FDA-Public Use
  Company Number: US-BIOGENIDEC-2015BI074657

PATIENT
  Age: 45 Year
  Sex: Female

DRUGS (24)
  1. NITROGLYCERIN ER [Concomitant]
     Active Substance: NITROGLYCERIN
  2. TRENTAL [Concomitant]
     Active Substance: PENTOXIFYLLINE
  3. LASIX [Concomitant]
     Active Substance: FUROSEMIDE
  4. PREVACID [Concomitant]
     Active Substance: LANSOPRAZOLE
  5. HYDROCODONE BITARTRATE AND ACETAMINOPHEN [Concomitant]
     Active Substance: ACETAMINOPHEN\HYDROCODONE BITARTRATE
  6. CARBINOXAMINE MALEATE. [Concomitant]
     Active Substance: CARBINOXAMINE MALEATE
  7. BUSPRIONE HCL [Concomitant]
  8. CLONAZEPAM. [Concomitant]
     Active Substance: CLONAZEPAM
  9. KLOR-CON M10 [Concomitant]
     Active Substance: POTASSIUM CHLORIDE
  10. CLONIDINE HCL [Concomitant]
     Active Substance: CLONIDINE HYDROCHLORIDE
  11. METFORMIN HCL [Concomitant]
     Active Substance: METFORMIN HYDROCHLORIDE
  12. PAXIL [Concomitant]
     Active Substance: PAROXETINE HYDROCHLORIDE
  13. TRAMADOL HCL ER [Concomitant]
  14. BACLOFEN. [Concomitant]
     Active Substance: BACLOFEN
  15. TECFIDERA [Suspect]
     Active Substance: DIMETHYL FUMARATE
     Indication: MULTIPLE SCLEROSIS
     Route: 048
     Dates: start: 20150219
  16. PRORANOLOL HCL [Concomitant]
  17. BUDESONIDE. [Concomitant]
     Active Substance: BUDESONIDE
  18. NEURONTIN [Concomitant]
     Active Substance: GABAPENTIN
  19. SEROQUEL [Concomitant]
     Active Substance: QUETIAPINE FUMARATE
  20. PROVENTIL HFA [Concomitant]
     Active Substance: ALBUTEROL SULFATE
  21. PROMETHAZINE HCL [Concomitant]
     Active Substance: PROMETHAZINE HYDROCHLORIDE
  22. METHOCARBAMOL. [Concomitant]
     Active Substance: METHOCARBAMOL
  23. DUONEB [Concomitant]
     Active Substance: ALBUTEROL SULFATE\IPRATROPIUM BROMIDE
  24. HYDROCHLOROTHIAZIDE. [Concomitant]
     Active Substance: HYDROCHLOROTHIAZIDE

REACTIONS (3)
  - Decreased appetite [Unknown]
  - Nausea [Unknown]
  - Dyspepsia [Unknown]
